FAERS Safety Report 11222800 (Version 2)
Quarter: 2015Q2

REPORT INFORMATION
  Report Type: Spontaneous
  Country: US (occurrence: US)
  Receive Date: 20150626
  Receipt Date: 20150629
  Transmission Date: 20150821
  Serious: No
  Sender: FDA-Public Use
  Company Number: US-PFIZER INC-2015210357

PATIENT
  Sex: Male

DRUGS (3)
  1. CARVEDILOL. [Interacting]
     Active Substance: CARVEDILOL
     Indication: BLOOD PRESSURE ABNORMAL
     Dosage: 25 MG, 2X/DAY
  2. VIAGRA [Suspect]
     Active Substance: SILDENAFIL CITRATE
     Dosage: 25 MG, UNK
  3. VIAGRA [Interacting]
     Active Substance: SILDENAFIL CITRATE
     Dosage: 50 MG, UNK

REACTIONS (3)
  - Drug interaction [Unknown]
  - Peripheral coldness [Unknown]
  - Drug ineffective [Unknown]
